FAERS Safety Report 11183241 (Version 1)
Quarter: 2015Q2

REPORT INFORMATION
  Report Type: Spontaneous
  Country: JP (occurrence: JP)
  Receive Date: 20150611
  Receipt Date: 20150611
  Transmission Date: 20150821
  Serious: Yes (Death, Hospitalization, Other)
  Sender: FDA-Public Use
  Company Number: PHHY2015JP067878

PATIENT
  Age: 93 Year
  Sex: Male

DRUGS (8)
  1. RIFAMPICIN [Suspect]
     Active Substance: RIFAMPIN
     Indication: PULMONARY TUBERCULOSIS
     Dosage: 400 MG, UNK
     Route: 065
  2. MEROPENEM. [Concomitant]
     Active Substance: MEROPENEM
     Indication: PNEUMONIA ASPIRATION
     Dosage: 0.5 G, QD
     Route: 065
  3. FLUCONAZOLE. [Suspect]
     Active Substance: FLUCONAZOLE
     Indication: PNEUMONIA ASPIRATION
     Dosage: 200 MG, QD
     Route: 065
  4. VANCOMYCIN [Concomitant]
     Active Substance: VANCOMYCIN
     Indication: PNEUMONIA ASPIRATION
     Dosage: 0.5 G, QD
     Route: 065
  5. ISONIAZID. [Suspect]
     Active Substance: ISONIAZID
     Indication: PULMONARY TUBERCULOSIS
     Dosage: 300 MG, UNK
     Route: 065
  6. AMPHOTERICIN B. [Concomitant]
     Active Substance: AMPHOTERICIN B
     Indication: PRODUCT USED FOR UNKNOWN INDICATION
     Dosage: 3 MG/KG, QD
     Route: 065
  7. MICAFUNGIN [Concomitant]
     Active Substance: MICAFUNGIN
     Indication: PRODUCT USED FOR UNKNOWN INDICATION
     Route: 065
  8. VORICONAZOLE. [Concomitant]
     Active Substance: VORICONAZOLE
     Indication: PRODUCT USED FOR UNKNOWN INDICATION
     Dosage: 4 T0 6 MG/KG/DAY
     Route: 065

REACTIONS (11)
  - Azotaemia [Unknown]
  - Acidosis [Unknown]
  - Pruritus [Unknown]
  - Myoglobin blood [Unknown]
  - Bacteraemia [Fatal]
  - Hiccups [Unknown]
  - Shock [Unknown]
  - Tremor [Unknown]
  - Rhabdomyolysis [Unknown]
  - Condition aggravated [Unknown]
  - Kussmaul respiration [Unknown]
